FAERS Safety Report 13000740 (Version 2)
Quarter: 2017Q1

REPORT INFORMATION
  Report Type: Spontaneous
  Country: CA (occurrence: CA)
  Receive Date: 20161206
  Receipt Date: 20170126
  Transmission Date: 20170428
  Serious: Yes (Other)
  Sender: FDA-Public Use
  Company Number: CA-ROCHE-1858197

PATIENT
  Sex: Female

DRUGS (7)
  1. ZOPLICONE [Concomitant]
     Active Substance: ZOPICLONE
  2. CELLCEPT [Suspect]
     Active Substance: MYCOPHENOLATE MOFETIL\MYCOPHENOLATE MOFETIL HYDROCHLORIDE
     Indication: PEMPHIGUS
     Route: 048
     Dates: start: 201610
  3. VITAMIN C [Concomitant]
     Active Substance: ASCORBIC ACID
  4. LOSEC [Concomitant]
     Active Substance: OMEPRAZOLE
  5. PREDNISONE. [Suspect]
     Active Substance: PREDNISONE
     Indication: PEMPHIGUS
     Route: 065
     Dates: start: 201610
  6. ACTONEL [Concomitant]
     Active Substance: RISEDRONATE SODIUM
     Route: 048
  7. ISONIAZID. [Concomitant]
     Active Substance: ISONIAZID

REACTIONS (5)
  - Insomnia [Unknown]
  - Off label use [Unknown]
  - Abdominal discomfort [Unknown]
  - Tachycardia [Unknown]
  - Pemphigus [Not Recovered/Not Resolved]
